FAERS Safety Report 20174200 (Version 1)
Quarter: 2021Q4

REPORT INFORMATION
  Report Type: Spontaneous
  Country: US (occurrence: US)
  Receive Date: 20211213
  Receipt Date: 20211213
  Transmission Date: 20220303
  Serious: Yes (Hospitalization, Other)
  Sender: FDA-Public Use
  Company Number: US-SPECGX-T202102695

PATIENT
  Age: 29 Year
  Sex: Male

DRUGS (1)
  1. FENTANYL CITRATE [Suspect]
     Active Substance: FENTANYL CITRATE
     Indication: Product used for unknown indication
     Dosage: UNK
     Route: 065

REACTIONS (6)
  - Leukocytosis [Unknown]
  - Oesophageal perforation [Unknown]
  - Pneumomediastinum [Unknown]
  - Acute kidney injury [Unknown]
  - Drug withdrawal syndrome [Unknown]
  - Generalised tonic-clonic seizure [Unknown]
